FAERS Safety Report 7326295-2 (Version None)
Quarter: 2011Q1

REPORT INFORMATION
  Report Type: 
  Country: None (occurrence: None)
  Receive Date: 20110302
  Receipt Date: 20110223
  Transmission Date: 20110831
  Serious: Yes (Other)
  Sender: FDA-Public Use
  Company Number: A0915987A

PATIENT
  Age: 46 Year
  Sex: Female

DRUGS (2)
  1. TYKERB [Suspect]
     Indication: BREAST CANCER
     Dosage: 1250MG PER DAY
     Dates: start: 20070801, end: 20100720
  2. XELODA [Suspect]
     Indication: BREAST CANCER
     Dates: start: 20070801, end: 20100701

REACTIONS (2)
  - MUCOSAL INFLAMMATION [None]
  - SKIN TOXICITY [None]
